FAERS Safety Report 9659333 (Version 2)
Quarter: 2013Q4

REPORT INFORMATION
  Report Type: Spontaneous
  Country: US (occurrence: US)
  Receive Date: 20131031
  Receipt Date: 20131115
  Transmission Date: 20140711
  Serious: Yes (Other)
  Sender: FDA-Public Use
  Company Number: US-JNJFOC-20131013147

PATIENT
  Age: 42 Year
  Sex: Female

DRUGS (15)
  1. TYLENOL [Suspect]
     Route: 048
  2. TYLENOL [Suspect]
     Indication: PREMEDICATION
     Route: 048
  3. BENADRYL [Suspect]
     Route: 048
  4. BENADRYL [Suspect]
     Indication: PREMEDICATION
     Route: 048
  5. SOLIRIS [Suspect]
     Indication: PAROXYSMAL NOCTURNAL HAEMOGLOBINURIA
     Route: 042
     Dates: start: 2010
  6. SOLIRIS [Suspect]
     Indication: PAROXYSMAL NOCTURNAL HAEMOGLOBINURIA
     Route: 042
     Dates: start: 20130205
  7. SOLIRIS [Suspect]
     Indication: PAROXYSMAL NOCTURNAL HAEMOGLOBINURIA
     Route: 042
     Dates: start: 20130122
  8. HYDROCORTISONE HYDROGEN SUCCINATE [Suspect]
     Indication: PREMEDICATION
     Route: 065
  9. WARFARIN SODIUM [Concomitant]
     Indication: PREMEDICATION
  10. SPIRONOLACTONE [Concomitant]
     Indication: PREMEDICATION
  11. HYDROCODONE BITARTRATE [Concomitant]
     Indication: PREMEDICATION
  12. IRON [Concomitant]
     Indication: PREMEDICATION
  13. LASIX [Concomitant]
     Indication: PREMEDICATION
  14. ASA [Concomitant]
     Indication: PREMEDICATION
  15. CALCIUM [Concomitant]
     Indication: PREMEDICATION

REACTIONS (4)
  - Blood pressure decreased [Recovered/Resolved]
  - Off label use [Unknown]
  - Vision blurred [Recovered/Resolved]
  - Headache [Recovered/Resolved]
